FAERS Safety Report 4678739-2 (Version None)
Quarter: 2005Q2

REPORT INFORMATION
  Report Type: 
  Country: None (occurrence: None)
  Receive Date: 20050531
  Receipt Date: 20050516
  Transmission Date: 20051028
  Serious: Yes (Hospitalization)
  Sender: FDA-Public Use
  Company Number: HQWYE789219MAY05

PATIENT
  Age: 76 Year
  Sex: Male
  Weight: 78.4 kg

DRUGS (26)
  1. RAPAMUNE [Suspect]
     Indication: PROPHYLAXIS AGAINST TRANSPLANT REJECTION
     Dosage: 8 MG 1X PER 1 DAY, ORAL
     Route: 048
     Dates: start: 20050131
  2. RAPAMUNE [Suspect]
  3. PREDNISONE [Suspect]
     Indication: PROPHYLAXIS AGAINST TRANSPLANT REJECTION
     Dosage: 5 MG 1X PER 1 DAY, ORAL
     Route: 048
  4. PROGRAF [Suspect]
     Indication: PROPHYLAXIS AGAINST TRANSPLANT REJECTION
     Dosage: 2 MG 2X PER 1 DAY, ORAL
     Route: 048
  5. ZENAPAX [Suspect]
     Indication: PROPHYLAXIS AGAINST TRANSPLANT REJECTION
     Dosage: ORAL
     Route: 048
  6. LANTUS [Concomitant]
  7. NOVOLOG [Concomitant]
  8. FLOMAX [Concomitant]
  9. FLOMAX (FLUTICASONE PROPIONATE) [Concomitant]
  10. COMBIVENT [Concomitant]
  11. ALBUTEROL [Concomitant]
  12. FLOVENT [Concomitant]
  13. PROCRIT [Concomitant]
  14. PRAVACHOL [Concomitant]
  15. NEXIUM [Concomitant]
  16. BACTRIM [Concomitant]
  17. NORVASC [Concomitant]
  18. ATENOLOL [Concomitant]
  19. CIPRO [Concomitant]
  20. PANCREASE (PANCRELIPASE) [Concomitant]
  21. MAGNESIUM OXIDE (MAGNESIUM OXIDE) [Concomitant]
  22. SODIUM BICARBONATE IN PLASTIC CONTAINER [Concomitant]
  23. DIGOXIN [Concomitant]
  24. BUMEX [Concomitant]
  25. THERAGRAN-M (MINERALS NOS/VITAMINS NOS) [Concomitant]
  26. COUMADIN [Concomitant]

REACTIONS (15)
  - BLOOD BICARBONATE DECREASED [None]
  - BLOOD CHLORIDE DECREASED [None]
  - BLOOD GLUCOSE INCREASED [None]
  - BLOOD PHOSPHORUS INCREASED [None]
  - DEEP VEIN THROMBOSIS [None]
  - DEHYDRATION [None]
  - DRUG INEFFECTIVE [None]
  - HYPOVOLAEMIA [None]
  - INTERNATIONAL NORMALISED RATIO DECREASED [None]
  - KIDNEY TRANSPLANT REJECTION [None]
  - PROTHROMBIN TIME PROLONGED [None]
  - PYELONEPHRITIS [None]
  - RENAL INTERSTITIAL FIBROSIS [None]
  - RENAL TUBULAR DISORDER [None]
  - VENOUS THROMBOSIS LIMB [None]
